FAERS Safety Report 20137478 (Version 3)
Quarter: 2021Q4

REPORT INFORMATION
  Report Type: Spontaneous
  Country: US (occurrence: US)
  Receive Date: 20211201
  Receipt Date: 20211217
  Transmission Date: 20220303
  Serious: No
  Sender: FDA-Public Use
  Company Number: US-AMGEN-USASP2021189224

PATIENT
  Age: 78 Year
  Sex: Female

DRUGS (1)
  1. OTEZLA [Suspect]
     Active Substance: APREMILAST
     Indication: Psoriasis
     Dosage: UNK TITRATION PACK
     Route: 065
     Dates: start: 20211127

REACTIONS (2)
  - Flatulence [Unknown]
  - Nausea [Unknown]

NARRATIVE: CASE EVENT DATE: 20211127
